FAERS Safety Report 8815702 (Version 1)
Quarter: 2012Q4

REPORT INFORMATION
  Report Type: Report from Study
  Country: AR (occurrence: AR)
  Receive Date: 20120928
  Receipt Date: 20120928
  Transmission Date: 20130627
  Serious: Yes (Hospitalization, Other)
  Sender: FDA-Public Use
  Company Number: AR-TEVA-355673ISR

PATIENT
  Age: 41 Year
  Sex: Male
  Weight: 86 kg

DRUGS (9)
  1. ARMODAFINIL [Suspect]
     Dosage: 200 Milligram Daily;
     Route: 048
     Dates: start: 20120214, end: 20120807
  2. LITHIUM CARBONATE [Concomitant]
     Indication: BIPOLAR DISORDER
     Dosage: 900 Milligram Daily;
     Route: 048
     Dates: start: 20120807, end: 20120816
  3. LITHIUM CARBONATE [Concomitant]
     Dosage: 900 Milligram Daily;
     Route: 048
     Dates: start: 20120824
  4. DIVALPROATE SODIUM [Concomitant]
     Indication: BIPOLAR DISORDER
     Dosage: 1750 Milligram Daily;
     Route: 048
     Dates: start: 20120807, end: 20120816
  5. DIVALPROATE SODIUM [Concomitant]
     Dosage: 1750 Milligram Daily;
     Route: 048
     Dates: start: 20120824
  6. OLANZAPINE [Concomitant]
     Indication: MANIA
     Dosage: 20 Milligram Daily;
     Route: 048
     Dates: start: 20120807, end: 20120811
  7. RISPERIDONE [Concomitant]
     Indication: MANIA
     Dosage: 2 Milligram Daily;
     Route: 048
     Dates: start: 20120812
  8. RISPERIDONE [Concomitant]
     Dosage: 2 Milligram Daily;
     Route: 048
     Dates: start: 20120824
  9. LORAZEPAM [Concomitant]
     Indication: MANIA
     Dosage: 1 Milligram Daily;
     Route: 048
     Dates: start: 20120824

REACTIONS (1)
  - Cholecystitis [Recovered/Resolved]
